FAERS Safety Report 12301000 (Version 3)
Quarter: 2019Q1

REPORT INFORMATION
  Report Type: Spontaneous
  Country: JP (occurrence: JP)
  Receive Date: 20160425
  Receipt Date: 20190314
  Transmission Date: 20190417
  Serious: Yes (Hospitalization, Other)
  Sender: FDA-Public Use
  Company Number: JP-BAYER-2016-070968

PATIENT
  Age: 52 Year
  Sex: Male

DRUGS (2)
  1. WARFARIN [Interacting]
     Active Substance: WARFARIN
     Dosage: DAILY DOSE 1 MG
     Route: 048
  2. BAYASPIRIN 100 MG [Suspect]
     Active Substance: ASPIRIN
     Dosage: DAILY DOSE 100 MG
     Route: 048
     Dates: start: 2006

REACTIONS (4)
  - Cerebral haemosiderin deposition [Recovering/Resolving]
  - Haemorrhage intracranial [None]
  - Labelled drug-drug interaction medication error [None]
  - Hydrocephalus [Recovering/Resolving]

NARRATIVE: CASE EVENT DATE: 201511
